FAERS Safety Report 22202702 (Version 3)
Quarter: 2023Q2

REPORT INFORMATION
  Report Type: Spontaneous
  Country: DE (occurrence: DE)
  Receive Date: 20230412
  Receipt Date: 20230627
  Transmission Date: 20230721
  Serious: Yes (Hospitalization)
  Sender: FDA-Public Use
  Company Number: DE-KRKA-DE2023K03986SPO

PATIENT
  Age: 71 Year
  Sex: Male
  Weight: 73.6 kg

DRUGS (5)
  1. RITUXIMAB [Suspect]
     Active Substance: RITUXIMAB
     Indication: Follicular lymphoma
     Dosage: 375 MG/M2
     Route: 042
     Dates: start: 20230214
  2. LENALIDOMIDE [Suspect]
     Active Substance: LENALIDOMIDE
     Indication: Follicular lymphoma
     Dosage: 20 MG, PER DAY
     Route: 048
     Dates: start: 20230214, end: 20230315
  3. LENALIDOMIDE [Suspect]
     Active Substance: LENALIDOMIDE
     Dosage: 15 MG, PER DAY
     Route: 048
     Dates: start: 20230320
  4. ASPIRIN [Concomitant]
     Active Substance: ASPIRIN
     Dosage: UNK
  5. ATORVASTATIN [Concomitant]
     Active Substance: ATORVASTATIN
     Dosage: UNK

REACTIONS (2)
  - Angina pectoris [Not Recovered/Not Resolved]
  - Acute myocardial infarction [Recovered/Resolved]

NARRATIVE: CASE EVENT DATE: 20230316
